FAERS Safety Report 16335648 (Version 1)
Quarter: 2019Q2

REPORT INFORMATION
  Report Type: Spontaneous
  Country: US (occurrence: US)
  Receive Date: 20190521
  Receipt Date: 20190521
  Transmission Date: 20190711
  Serious: No
  Sender: FDA-Public Use
  Company Number: US-009507513-1905USA006600

PATIENT
  Age: 60 Year
  Sex: Female

DRUGS (5)
  1. INTRON A [Suspect]
     Active Substance: INTERFERON ALFA-2B
     Indication: IRIDOCYCLITIS
     Dosage: 5 MU/0.5 MILLILITER, 3 MILLION UNITS (0.3 ML), 3 TIMES A WEEK, UNDER THE SKIN
  2. INTRON A [Suspect]
     Active Substance: INTERFERON ALFA-2B
     Indication: BEHCET^S SYNDROME
  3. INTRON A [Suspect]
     Active Substance: INTERFERON ALFA-2B
     Indication: UVEITIS
  4. INTRON A [Suspect]
     Active Substance: INTERFERON ALFA-2B
     Indication: ARTERIOSCLEROSIS CORONARY ARTERY
  5. INTRON A [Suspect]
     Active Substance: INTERFERON ALFA-2B
     Indication: PULMONARY OEDEMA

REACTIONS (4)
  - Product dose omission [Unknown]
  - Paraesthesia [Unknown]
  - Fatigue [Unknown]
  - Product use in unapproved indication [Unknown]

NARRATIVE: CASE EVENT DATE: 201905
